FAERS Safety Report 8444350-0 (Version None)
Quarter: 2012Q2

REPORT INFORMATION
  Report Type: 
  Country: None (occurrence: None)
  Receive Date: 20120618
  Receipt Date: 20120612
  Transmission Date: 20120825
  Serious: Yes (Other)
  Sender: FDA-Public Use
  Company Number: CN-SANOFI-AVENTIS-2012SA042392

PATIENT

DRUGS (5)
  1. OXALIPLATIN [Suspect]
     Indication: COLORECTAL CANCER STAGE III
     Dosage: SYSTEMIC REGIMEN, GIVEN AS 2 HOUR INFUSION ON DAY 1 OF A 4 WEEK CYCLE
  2. GRANISETRON [Concomitant]
     Route: 042
  3. DEXAMETHASONE [Concomitant]
     Dosage: PRIOR TO ADMINISTRATION OF OXALIPLATIN AND DURING FLUOROURACIL ADMINISTRATION
     Route: 013
  4. FLUOROURACIL [Suspect]
     Indication: COLORECTAL CANCER STAGE III
     Dosage: SYSTEMIC REGIMEN, GIVEN AS 48 HOUR INFUSION ON DAYS 2 AND 3 OF A 4 WEEK CYCLE
  5. LEUCOVORIN CALCIUM [Suspect]
     Indication: COLORECTAL CANCER STAGE III
     Dosage: SYSTEMIC REGIMEN, GIVEN AS 2 HOUR INFUSION ON DAYS 2 AND 3 OF A 4 WEEK CYCLE

REACTIONS (1)
  - SKIN ULCER [None]
